FAERS Safety Report 5760903-2 (Version None)
Quarter: 2008Q2

REPORT INFORMATION
  Report Type: 
  Country: None (occurrence: None)
  Receive Date: 20080606
  Receipt Date: 20080603
  Transmission Date: 20081010
  Serious: Yes (Hospitalization)
  Sender: FDA-Public Use
  Company Number: US-BRISTOL-MYERS SQUIBB COMPANY-14214530

PATIENT
  Age: 56 Year
  Sex: Male
  Weight: 64 kg

DRUGS (2)
  1. CISPLATIN [Suspect]
     Indication: HEAD AND NECK CANCER
     Dosage: START DATE OF FIRST COURSE: 15-APR-2008.
     Route: 042
     Dates: start: 20080506, end: 20080506
  2. RADIATION THERAPY [Suspect]
     Indication: HEAD AND NECK CANCER
     Dosage: 1 DOSAGE FORM = 56 GY(28 FRACTIONS). START DATE OF FIRST COURSE: 15-APR-2008.
     Dates: start: 20080516, end: 20080516

REACTIONS (2)
  - HYPOGLYCAEMIA [None]
  - MUCOSAL INFLAMMATION [None]
